FAERS Safety Report 20652698 (Version 5)
Quarter: 2023Q2

REPORT INFORMATION
  Report Type: Spontaneous
  Country: AU (occurrence: AU)
  Receive Date: 20220330
  Receipt Date: 20230515
  Transmission Date: 20230722
  Serious: Yes (Hospitalization, Other)
  Sender: FDA-Public Use
  Company Number: AU-MYLANLABS-2022M1022785

PATIENT
  Sex: Female

DRUGS (3)
  1. CLOZARIL [Suspect]
     Active Substance: CLOZAPINE
     Indication: Schizophrenia
     Dosage: 150 MILLIGRAM
     Route: 048
     Dates: start: 20171207
  2. CLOZARIL [Suspect]
     Active Substance: CLOZAPINE
     Dosage: 75 MILLIGRAM
     Route: 048
     Dates: start: 20171207
  3. CLOZARIL [Suspect]
     Active Substance: CLOZAPINE
     Dosage: 125 MILLIGRAM
     Route: 048
     Dates: start: 20171207

REACTIONS (10)
  - Antipsychotic drug level increased [Unknown]
  - COVID-19 [Unknown]
  - Pneumonia [Unknown]
  - Hypertension [Unknown]
  - Tachycardia [Unknown]
  - Toxicity to various agents [Unknown]
  - Psychotic disorder [Unknown]
  - Hypernatraemia [Unknown]
  - Weight decreased [Unknown]
  - Malaise [Unknown]
